FAERS Safety Report 4393158-4 (Version None)
Quarter: 2004Q3

REPORT INFORMATION
  Report Type: 
  Country: None (occurrence: None)
  Receive Date: 20040708
  Receipt Date: 20040621
  Transmission Date: 20050211
  Serious: Yes (Other)
  Sender: FDA-Public Use
  Company Number: PHBS2004US08564

PATIENT
  Age: 39 Year
  Sex: Female

DRUGS (6)
  1. HYDROCHLOROTHIAZIDE [Suspect]
     Indication: HYPERTENSION
  2. ROFECOXIB [Concomitant]
     Indication: RHEUMATOID ARTHRITIS
  3. BUSPIRONE [Concomitant]
  4. PROMETHAZINE [Concomitant]
  5. CLONAZEPAM [Concomitant]
  6. SERTRALINE HCL [Concomitant]

REACTIONS (6)
  - BLISTER [None]
  - HISTOLOGY ABNORMAL [None]
  - LINEAR IGA DISEASE [None]
  - PRURITUS [None]
  - SKIN HYPERPIGMENTATION [None]
  - SKIN ULCER [None]
